FAERS Safety Report 13499737 (Version 2)
Quarter: 2017Q2

REPORT INFORMATION
  Report Type: Spontaneous
  Country: IT (occurrence: IT)
  Receive Date: 20170501
  Receipt Date: 20170606
  Transmission Date: 20170830
  Serious: Yes (Life-Threatening)
  Sender: FDA-Public Use
  Company Number: IT-TEVA-762517ACC

PATIENT
  Age: 58 Year
  Sex: Male

DRUGS (3)
  1. MAALOX - SANOFI S.P.A. [Suspect]
     Active Substance: ALUMINUM HYDROXIDE\MAGNESIUM HYDROXIDE
     Indication: PRODUCT USED FOR UNKNOWN INDICATION
  2. AMOXICILLIN + CLAVULANIC ACID [Suspect]
     Active Substance: AMOXICILLIN\CLAVULANIC ACID
     Indication: ANAL ABSCESS
     Dosage: 3 GRAM DAILY;
     Route: 048
     Dates: start: 20170107, end: 20170121
  3. LEVOFLOXACIN. [Suspect]
     Active Substance: LEVOFLOXACIN
     Indication: ANAL ABSCESS
     Dosage: 500 MILLIGRAM DAILY;
     Route: 048
     Dates: start: 20170119, end: 20170121

REACTIONS (3)
  - Bronchospasm [Recovered/Resolved]
  - Urticaria [Recovered/Resolved]
  - Angioedema [Recovered/Resolved]

NARRATIVE: CASE EVENT DATE: 20170121
